FAERS Safety Report 24313371 (Version 1)
Quarter: 2024Q3

REPORT INFORMATION
  Report Type: Spontaneous
  Country: US (occurrence: US)
  Receive Date: 20240912
  Receipt Date: 20240912
  Transmission Date: 20241017
  Serious: No
  Sender: TEVA
  Company Number: US-TEVA-VS-3237517

PATIENT
  Age: 48 Year
  Sex: Female
  Weight: 73.7 kg

DRUGS (1)
  1. QVAR REDIHALER [Suspect]
     Active Substance: BECLOMETHASONE DIPROPIONATE
     Indication: Asthma
     Dosage: 1 PUFF BY MOUTH TWICE DAILY
     Route: 055
     Dates: start: 20230915

REACTIONS (1)
  - Symptom recurrence [Unknown]
